FAERS Safety Report 12518496 (Version 1)
Quarter: 2016Q2

REPORT INFORMATION
  Report Type: Spontaneous
  Country: CH (occurrence: CH)
  Receive Date: 20160630
  Receipt Date: 20160630
  Transmission Date: 20160815
  Serious: Yes (Hospitalization)
  Sender: FDA-Public Use
  Company Number: CH-PFIZER INC-2015058571

PATIENT
  Age: 29 Year
  Sex: Female

DRUGS (4)
  1. TEMESTA [Suspect]
     Active Substance: LORAZEPAM
     Indication: ANXIETY
     Dosage: AS NEEDED
     Route: 048
  2. HALDOL [Suspect]
     Active Substance: HALOPERIDOL
     Indication: BIPOLAR I DISORDER
     Dosage: 1 MG, 1X/DAY
     Route: 048
     Dates: start: 20150115
  3. ABILIFY [Suspect]
     Active Substance: ARIPIPRAZOLE
     Indication: BIPOLAR I DISORDER
     Dosage: 5 MG, 1X/DAY
     Route: 048
     Dates: start: 2014, end: 20150115
  4. HALDOL [Suspect]
     Active Substance: HALOPERIDOL
     Dosage: 2 MG, 1X/DAY
     Route: 048

REACTIONS (4)
  - Psychiatric decompensation [Unknown]
  - Hypomania [Unknown]
  - Mania [Unknown]
  - Sleep disorder [Unknown]

NARRATIVE: CASE EVENT DATE: 201501
